FAERS Safety Report 23219445 (Version 2)
Quarter: 2023Q4

REPORT INFORMATION
  Report Type: Spontaneous
  Country: JP (occurrence: JP)
  Receive Date: 20231122
  Receipt Date: 20231221
  Transmission Date: 20240110
  Serious: Yes (Hospitalization)
  Sender: FDA-Public Use
  Company Number: JP-Eisai-202309834_LEN-RCC_P_1

PATIENT
  Age: 74 Year
  Sex: Male

DRUGS (2)
  1. LENVIMA [Suspect]
     Active Substance: LENVATINIB
     Indication: Renal cell carcinoma
     Route: 048
     Dates: start: 20231025, end: 202311
  2. KEYTRUDA [Suspect]
     Active Substance: PEMBROLIZUMAB
     Indication: Renal cell carcinoma
     Route: 041
     Dates: start: 202311, end: 202311

REACTIONS (2)
  - Myasthenia gravis [Recovering/Resolving]
  - Myocarditis [Recovering/Resolving]

NARRATIVE: CASE EVENT DATE: 20231113
